FAERS Safety Report 22672874 (Version 2)
Quarter: 2023Q4

REPORT INFORMATION
  Report Type: Spontaneous
  Country: US (occurrence: US)
  Receive Date: 20230705
  Receipt Date: 20231227
  Transmission Date: 20240110
  Serious: Yes (Other)
  Sender: FDA-Public Use
  Company Number: US-SANOFI-01676980

PATIENT
  Sex: Male

DRUGS (2)
  1. KEVZARA [Suspect]
     Active Substance: SARILUMAB
     Dosage: 200 MG
  2. KEVZARA [Suspect]
     Active Substance: SARILUMAB
     Dosage: 150 MG

REACTIONS (1)
  - Neutropenia [Not Recovered/Not Resolved]
